FAERS Safety Report 17436719 (Version 1)
Quarter: 2020Q1

REPORT INFORMATION
  Report Type: Spontaneous
  Country: US (occurrence: US)
  Receive Date: 20200219
  Receipt Date: 20200219
  Transmission Date: 20200409
  Serious: No
  Sender: FDA-Public Use
  Company Number: US-SA-2020SA043177

PATIENT
  Sex: Female

DRUGS (1)
  1. LEFLUNOMIDE. [Suspect]
     Active Substance: LEFLUNOMIDE
     Dosage: UNK
     Route: 065

REACTIONS (5)
  - Rash pruritic [Unknown]
  - Rash [Unknown]
  - Fibrosis [Unknown]
  - Condition aggravated [Unknown]
  - Rheumatoid nodule [Unknown]
